FAERS Safety Report 25641721 (Version 2)
Quarter: 2025Q4

REPORT INFORMATION
  Report Type: Spontaneous
  Country: US (occurrence: US)
  Receive Date: 20250804
  Receipt Date: 20251211
  Transmission Date: 20260118
  Serious: Yes (Hospitalization)
  Sender: ELI LILLY AND COMPANY
  Company Number: US-ELI_LILLY_AND_COMPANY-US202507025021

PATIENT
  Age: 55 Year
  Sex: Female

DRUGS (14)
  1. TRULICITY [Suspect]
     Active Substance: DULAGLUTIDE
     Indication: Type 2 diabetes mellitus
     Dosage: 4.5 MG, WEEKLY (1/W)
     Route: 065
     Dates: start: 20220912, end: 20240329
  2. TRULICITY [Suspect]
     Active Substance: DULAGLUTIDE
     Indication: Weight control
  3. TRULICITY [Suspect]
     Active Substance: DULAGLUTIDE
     Indication: Hypertension
  4. TRULICITY [Suspect]
     Active Substance: DULAGLUTIDE
     Indication: Dyspnoea
  5. OZEMPIC [Suspect]
     Active Substance: SEMAGLUTIDE
     Indication: Type 2 diabetes mellitus
     Dosage: 0.25 MG, WEEKLY (1/W)
     Route: 065
     Dates: start: 20220630, end: 20220630
  6. OZEMPIC [Suspect]
     Active Substance: SEMAGLUTIDE
     Indication: Weight control
     Dosage: 2 MG, WEEKLY (1/W)
     Route: 065
     Dates: start: 20220706, end: 20220720
  7. OZEMPIC [Suspect]
     Active Substance: SEMAGLUTIDE
     Indication: Hypertension
  8. OZEMPIC [Suspect]
     Active Substance: SEMAGLUTIDE
     Indication: Dyspnoea
  9. VICTOZA [Suspect]
     Active Substance: LIRAGLUTIDE
     Indication: Type 2 diabetes mellitus
     Dosage: 1.8 MG, DAILY
     Route: 065
     Dates: start: 20210406, end: 20220609
  10. VICTOZA [Suspect]
     Active Substance: LIRAGLUTIDE
     Indication: Weight control
  11. VICTOZA [Suspect]
     Active Substance: LIRAGLUTIDE
     Indication: Hypertension
  12. VICTOZA [Suspect]
     Active Substance: LIRAGLUTIDE
     Indication: Dyspnoea
  13. GABAPENTIN [Concomitant]
     Active Substance: GABAPENTIN
     Indication: Pain
     Dosage: UNK UNK, UNKNOWN
     Route: 065
     Dates: start: 20220101, end: 20241231
  14. PANTOPRAZOLE [Concomitant]
     Active Substance: PANTOPRAZOLE
     Indication: Gastrooesophageal reflux disease
     Dosage: UNK UNK, UNKNOWN
     Route: 065
     Dates: start: 20210101, end: 20241231

REACTIONS (5)
  - Impaired gastric emptying [Recovered/Resolved]
  - Vomiting [Recovered/Resolved]
  - Nausea [Recovered/Resolved]
  - Constipation [Recovered/Resolved]
  - Abdominal pain [Recovered/Resolved]

NARRATIVE: CASE EVENT DATE: 20230317
